FAERS Safety Report 20126895 (Version 1)
Quarter: 2021Q4

REPORT INFORMATION
  Report Type: Spontaneous
  Country: US (occurrence: None)
  Receive Date: 20211129
  Receipt Date: 20211129
  Transmission Date: 20220303
  Serious: No
  Sender: FDA-Public Use
  Company Number: None

PATIENT
  Age: 79 Year
  Sex: Female

DRUGS (1)
  1. KISQALI [Suspect]
     Active Substance: RIBOCICLIB
     Indication: Breast cancer
     Dosage: FREQUENCY : DAILY;?
     Route: 048
     Dates: start: 20210709

REACTIONS (5)
  - Pelvic pain [None]
  - Vein rupture [None]
  - Skin discolouration [None]
  - Incontinence [None]
  - Contusion [None]

NARRATIVE: CASE EVENT DATE: 20211105
